FAERS Safety Report 4462799-8 (Version None)
Quarter: 2004Q3

REPORT INFORMATION
  Report Type: 
  Country: None (occurrence: None)
  Receive Date: 20040927
  Receipt Date: 20040914
  Transmission Date: 20050211
  Serious: Yes (Death, Other)
  Sender: FDA-Public Use
  Company Number: 2004066878

PATIENT
  Age: 73 Year
  Sex: Female
  Weight: 86.1834 kg

DRUGS (4)
  1. NEURONTIN [Suspect]
     Indication: PAIN IN EXTREMITY
     Dosage: 900 MG (300 MG, 3  IN 1 D), ORAL
     Route: 048
     Dates: start: 20040101, end: 20040101
  2. ATENOLOL [Concomitant]
  3. SIMVASTATIN [Concomitant]
  4. FLUOXETINE [Concomitant]

REACTIONS (3)
  - DEPRESSION [None]
  - HEART VALVE INSUFFICIENCY [None]
  - MYOCARDIAL INFARCTION [None]
